FAERS Safety Report 20496504 (Version 1)
Quarter: 2022Q1

REPORT INFORMATION
  Report Type: Spontaneous
  Country: US (occurrence: US)
  Receive Date: 20220221
  Receipt Date: 20220221
  Transmission Date: 20220423
  Serious: No
  Sender: FDA-Public Use
  Company Number: US-JNJFOC-20220234448

PATIENT
  Age: 43 Year
  Sex: Female
  Weight: 77.180 kg

DRUGS (2)
  1. CONCERTA [Suspect]
     Active Substance: METHYLPHENIDATE HYDROCHLORIDE
     Indication: Attention deficit hyperactivity disorder
     Route: 065
  2. CONCERTA [Suspect]
     Active Substance: METHYLPHENIDATE HYDROCHLORIDE
     Route: 065

REACTIONS (5)
  - Drug screen negative [Unknown]
  - Depressed mood [Unknown]
  - Fall [Unknown]
  - Arthralgia [Unknown]
  - Excessive cerumen production [Unknown]
